FAERS Safety Report 6409822-9 (Version None)
Quarter: 2009Q4

REPORT INFORMATION
  Report Type: 
  Country: None (occurrence: None)
  Receive Date: 20091022
  Receipt Date: 20091016
  Transmission Date: 20100525
  Serious: Yes (Hospitalization)
  Sender: FDA-Public Use
  Company Number: JP-ABBOTT-08P-087-0494679-00

PATIENT
  Sex: Female

DRUGS (13)
  1. HUMIRA [Suspect]
     Indication: RHEUMATOID ARTHRITIS
     Route: 058
     Dates: start: 20081020
  2. PREDNISOLONE [Suspect]
     Indication: RHEUMATOID ARTHRITIS
     Route: 048
     Dates: end: 20090112
  3. PREDNISOLONE [Suspect]
     Dates: start: 20080601, end: 20080901
  4. PREDNISOLONE [Suspect]
     Dates: start: 20080901
  5. CYCLOSPORINE [Concomitant]
     Indication: RHEUMATOID ARTHRITIS
     Route: 048
     Dates: start: 20081201, end: 20081214
  6. CYCLOSPORINE [Concomitant]
     Route: 048
     Dates: start: 20081215
  7. DICLOFENAC SODIUM [Concomitant]
     Indication: RHEUMATOID ARTHRITIS
     Dosage: DAILY
     Route: 048
  8. NIZATIDINE [Concomitant]
     Indication: GASTROINTESTINAL DISORDER
     Dosage: DAILY
     Route: 048
  9. ALENDRONATE SODIUM [Concomitant]
     Indication: OSTEOPOROSIS
     Route: 048
  10. PREDNISOLONE [Concomitant]
     Dosage: 13 MG DAILY
     Route: 048
     Dates: start: 20090113, end: 20090208
  11. PREDNISOLONE [Concomitant]
     Dosage: 11 MG DAILY
     Route: 048
     Dates: start: 20090209, end: 20090408
  12. PREDNISOLONE [Concomitant]
     Dosage: 10 MG DAILY
     Route: 048
     Dates: start: 20090409
  13. TRIAZOLAM [Concomitant]
     Indication: DRUG USE FOR UNKNOWN INDICATION

REACTIONS (2)
  - ARTHRALGIA [None]
  - RASH PUSTULAR [None]
